FAERS Safety Report 5376607-4 (Version None)
Quarter: 2007Q2

REPORT INFORMATION
  Report Type: 
  Country: None (occurrence: None)
  Receive Date: 20070628
  Receipt Date: 20070613
  Transmission Date: 20071010
  Serious: Yes (Other)
  Sender: FDA-Public Use
  Company Number: 2007US001426

PATIENT
  Age: 46 Year
  Sex: Male

DRUGS (4)
  1. AMBISOME [Suspect]
     Indication: FEBRILE NEUTROPENIA
  2. CYTARABINE [Suspect]
     Indication: DRUG USE FOR UNKNOWN INDICATION
     Dosage: 100 MG/M2, BID, IV NOS
     Route: 042
  3. DAUNORUBICIN HCL [Suspect]
     Indication: DRUG USE FOR UNKNOWN INDICATION
     Dosage: 50 MG/M2, UNK, IV NOS
     Route: 042
  4. ETOPOSIDE [Suspect]
     Indication: DRUG USE FOR UNKNOWN INDICATION
     Dosage: 100 MG/M2, UNK, IV NOS
     Route: 042

REACTIONS (7)
  - ACUTE MYELOID LEUKAEMIA [None]
  - ASPERGILLOSIS [None]
  - HYDRONEPHROSIS [None]
  - INTESTINAL PERFORATION [None]
  - MEGACOLON [None]
  - MUCOSAL ULCERATION [None]
  - NECROSIS ISCHAEMIC [None]
